FAERS Safety Report 6100525-7 (Version None)
Quarter: 2009Q1

REPORT INFORMATION
  Report Type: 
  Country: None (occurrence: None)
  Receive Date: 20090303
  Receipt Date: 20090224
  Transmission Date: 20090719
  Serious: Yes (Hospitalization)
  Sender: FDA-Public Use
  Company Number: JP-SANOFI-SYNTHELABO-A01200900408

PATIENT
  Sex: Female
  Weight: 51.4 kg

DRUGS (6)
  1. LENDORMIN [Concomitant]
     Indication: INSOMNIA
     Route: 048
     Dates: start: 20080319
  2. ALLEGRA [Concomitant]
     Indication: PRURITUS
     Route: 048
     Dates: start: 20080414, end: 20081010
  3. TAKEPRON [Concomitant]
     Indication: REFLUX OESOPHAGITIS
     Route: 048
     Dates: end: 20081015
  4. PLAVIX [Suspect]
     Indication: CEREBRAL INFARCTION
     Route: 048
     Dates: start: 20080529, end: 20081015
  5. PLAVIX [Suspect]
     Indication: SHUNT OCCLUSION
     Route: 048
     Dates: start: 20080529, end: 20081015
  6. LASIX [Concomitant]
     Indication: RENAL FAILURE CHRONIC
     Route: 048
     Dates: end: 20081015

REACTIONS (1)
  - RASH SCARLATINIFORM [None]
